FAERS Safety Report 9791869 (Version 1)
Quarter: 2014Q1

REPORT INFORMATION
  Report Type: Spontaneous
  Country: US (occurrence: US)
  Receive Date: 20140102
  Receipt Date: 20140102
  Transmission Date: 20141002
  Serious: No
  Sender: FDA-Public Use
  Company Number: US-PFIZER INC-2013373144

PATIENT
  Age: 51 Year
  Sex: Male
  Weight: 58.96 kg

DRUGS (2)
  1. ADVIL [Suspect]
     Indication: FOOT FRACTURE
     Dosage: 200 MG, TWO TIMES A DAY
     Route: 048
     Dates: start: 201312
  2. ADVIL [Suspect]
     Indication: PATELLA FRACTURE

REACTIONS (1)
  - Dyspepsia [Unknown]
